FAERS Safety Report 7706771-0 (Version None)
Quarter: 2011Q3

REPORT INFORMATION
  Report Type: 
  Country: None (occurrence: None)
  Receive Date: 20110824
  Receipt Date: 20110822
  Transmission Date: 20111222
  Serious: Yes (Death)
  Sender: FDA-Public Use
  Company Number: IE-AMGEN-IRLSP2011042551

PATIENT
  Age: 85 Year
  Sex: Female

DRUGS (4)
  1. CENTYL [Concomitant]
  2. NEULASTA [Suspect]
     Indication: CHEMOTHERAPY
     Dosage: 6 MG, Q3WK
     Route: 058
     Dates: start: 20110712
  3. ANTINEOPLASTIC AGENTS [Concomitant]
  4. ARANESP [Suspect]
     Indication: PRODUCT USED FOR UNKNOWN INDICATION
     Dosage: 300 A?G, Q3WK
     Route: 058
     Dates: start: 20110712

REACTIONS (1)
  - DEATH [None]
